FAERS Safety Report 7126739-5 (Version None)
Quarter: 2010Q4

REPORT INFORMATION
  Report Type: 
  Country: None (occurrence: None)
  Receive Date: 20101129
  Receipt Date: 20101124
  Transmission Date: 20110411
  Serious: Yes (Disabling)
  Sender: FDA-Public Use
  Company Number: PHHO2010DE17888

PATIENT
  Sex: Male
  Weight: 85 kg

DRUGS (4)
  1. ZOLEDRONATE T29581+SOLINJ+BM [Suspect]
     Indication: PROSTATE CANCER
     Dosage: 4 MG
     Route: 042
     Dates: start: 20050617, end: 20080515
  2. ALLOPURINOL [Concomitant]
  3. BISOPROLOL FUMARATE [Concomitant]
  4. OXAZEPAM [Concomitant]

REACTIONS (1)
  - OSTEONECROSIS OF JAW [None]
